FAERS Safety Report 10071787 (Version 1)
Quarter: 2014Q2

REPORT INFORMATION
  Report Type: Spontaneous
  Country: US (occurrence: US)
  Receive Date: 20140411
  Receipt Date: 20140411
  Transmission Date: 20141212
  Serious: No
  Sender: FDA-Public Use
  Company Number: US-BIOGENIDEC-2014BI020175

PATIENT
  Sex: Female
  Weight: 138 kg

DRUGS (6)
  1. TYSABRI [Suspect]
     Indication: MULTIPLE SCLEROSIS
     Route: 042
     Dates: start: 20110218, end: 201310
  2. ONDASETRON [Concomitant]
     Indication: NAUSEA
  3. ROBITUSSIN [Concomitant]
     Indication: GENERAL SYMPTOM
  4. SIMETHICONE [Concomitant]
     Route: 048
  5. PRENAVITE [Concomitant]
  6. VITAMIN D [Concomitant]

REACTIONS (2)
  - Vomiting in pregnancy [Unknown]
  - Pollakiuria [Unknown]
